FAERS Safety Report 8541002-3 (Version None)
Quarter: 2012Q3

REPORT INFORMATION
  Report Type: 
  Country: None (occurrence: None)
  Receive Date: 20120726
  Receipt Date: 20110810
  Transmission Date: 20120928
  Serious: No
  Sender: FDA-Public Use
  Company Number: US-ASTRAZENECA-2011SE47758

PATIENT
  Age: 47 Year
  Sex: Male

DRUGS (6)
  1. SERTRALINE HYDROCHLORIDE [Concomitant]
     Indication: DEPRESSION
  2. CLONAZEPAM [Concomitant]
     Indication: ANXIETY
  3. CLONOPIN [Concomitant]
     Indication: ANXIETY
  4. SEROQUEL [Suspect]
     Route: 048
  5. SEROQUEL [Suspect]
     Route: 048
  6. ZOLOFT [Concomitant]
     Indication: DEPRESSION

REACTIONS (3)
  - STRESS [None]
  - DRUG DOSE OMISSION [None]
  - ANXIETY [None]
